FAERS Safety Report 7905871-X (Version None)
Quarter: 2011Q4

REPORT INFORMATION
  Report Type: 
  Country: None (occurrence: None)
  Receive Date: 20111110
  Receipt Date: 20111108
  Transmission Date: 20120403
  Serious: No
  Sender: FDA-Public Use
  Company Number: US-PFIZER INC-2011273641

PATIENT
  Sex: Male
  Weight: 75.74 kg

DRUGS (1)
  1. DILANTIN [Suspect]
     Indication: EPILEPSY
     Dosage: UNK, 1X/DAY
     Route: 048

REACTIONS (1)
  - FEELING ABNORMAL [None]
